FAERS Safety Report 10989095 (Version 1)
Quarter: 2015Q2

REPORT INFORMATION
  Report Type: Spontaneous
  Country: SE (occurrence: SE)
  Receive Date: 20150406
  Receipt Date: 20150406
  Transmission Date: 20150821
  Serious: Yes (Other)
  Sender: FDA-Public Use
  Company Number: SE-AMGEN-SWESP2015031305

PATIENT
  Age: 31 Year
  Sex: Male

DRUGS (2)
  1. ENBREL [Suspect]
     Active Substance: ETANERCEPT
     Indication: PSORIASIS
     Dosage: UNK
     Route: 065
     Dates: start: 201407, end: 2014
  2. ENBREL [Suspect]
     Active Substance: ETANERCEPT
     Indication: PSORIATIC ARTHROPATHY

REACTIONS (8)
  - Pyrexia [Unknown]
  - White blood cell count decreased [Unknown]
  - Pain [Unknown]
  - Fatigue [Unknown]
  - Drug ineffective [Unknown]
  - Asthenia [Unknown]
  - Immunosuppression [Unknown]
  - Middle insomnia [Unknown]

NARRATIVE: CASE EVENT DATE: 2014
